FAERS Safety Report 4300474-0 (Version None)
Quarter: 2004Q1

REPORT INFORMATION
  Report Type: 
  Country: None (occurrence: None)
  Receive Date: 20040218
  Receipt Date: 20031210
  Transmission Date: 20041129
  Serious: Yes (Hospitalization, Other)
  Sender: FDA-Public Use
  Company Number: USA-2003-0006695

PATIENT
  Age: 36 Year
  Sex: Female

DRUGS (9)
  1. OXYCONTIN [Suspect]
     Indication: PAIN
     Dosage: 30 MG, BID, ORAL
     Route: 048
     Dates: start: 20010101
  2. FERROUS GLUCONATE (FERROUS GLUCONATE) [Concomitant]
  3. PEPCID [Concomitant]
  4. COLACE CAPSULES (DOCUSATE SODIUM) [Concomitant]
  5. FOLIC ACID [Concomitant]
  6. VITAMIN C (ASCORBIC ACID) [Concomitant]
  7. SENOKOT [Concomitant]
  8. VICODIN ES [Concomitant]
  9. COUMADIN [Concomitant]

REACTIONS (18)
  - AGGRESSION [None]
  - ANXIETY [None]
  - BACK PAIN [None]
  - BONE MARROW TRANSPLANT [None]
  - DEEP VEIN THROMBOSIS [None]
  - DELUSIONAL DISORDER, UNSPECIFIED TYPE [None]
  - DEPRESSION [None]
  - DRUG DEPENDENCE [None]
  - DRUG WITHDRAWAL SYNDROME [None]
  - EMOTIONAL DISTRESS [None]
  - HALLUCINATION [None]
  - HYPERHIDROSIS [None]
  - INSOMNIA [None]
  - MOOD SWINGS [None]
  - OBSESSIVE-COMPULSIVE DISORDER [None]
  - PAIN [None]
  - PARANOIA [None]
  - TREMOR [None]
